FAERS Safety Report 14184245 (Version 1)
Quarter: 2017Q4

REPORT INFORMATION
  Report Type: Spontaneous
  Country: US (occurrence: US)
  Receive Date: 20171113
  Receipt Date: 20171113
  Transmission Date: 20180321
  Serious: No
  Sender: FDA-Public Use
  Company Number: US-ALLERGAN-1713720US

PATIENT
  Age: 56 Year
  Sex: Male

DRUGS (3)
  1. AMPYRA [Suspect]
     Active Substance: DALFAMPRIDINE
     Indication: MULTIPLE SCLEROSIS
     Dosage: 10 MG, BID
     Route: 048
     Dates: start: 2014
  2. AUBAGIO [Concomitant]
     Active Substance: TERIFLUNOMIDE
     Indication: PRODUCT USED FOR UNKNOWN INDICATION
     Route: 065
  3. RAPAFLO [Suspect]
     Active Substance: SILODOSIN
     Indication: URINARY INCONTINENCE
     Dosage: UNK
     Route: 065
     Dates: start: 2014

REACTIONS (10)
  - Gait disturbance [Not Recovered/Not Resolved]
  - Fall [Recovered/Resolved]
  - Exercise tolerance decreased [Not Recovered/Not Resolved]
  - Muscle spasticity [Unknown]
  - Bladder dysfunction [Not Recovered/Not Resolved]
  - Musculoskeletal stiffness [Unknown]
  - Urinary incontinence [Not Recovered/Not Resolved]
  - Malaise [Unknown]
  - Condition aggravated [Not Recovered/Not Resolved]
  - Laceration [Recovered/Resolved]

NARRATIVE: CASE EVENT DATE: 201701
